FAERS Safety Report 10457652 (Version 1)
Quarter: 2014Q3

REPORT INFORMATION
  Report Type: Spontaneous
  Country: CA (occurrence: CA)
  Receive Date: 20140916
  Receipt Date: 20140916
  Transmission Date: 20150326
  Serious: Yes (Disabling)
  Sender: FDA-Public Use
  Company Number: CA-TEVA-508674USA

PATIENT
  Age: 72 Year
  Sex: Female
  Weight: 79.9 kg

DRUGS (1)
  1. TEVA-LEVOFLOXACIN [Suspect]
     Active Substance: LEVOFLOXACIN
     Indication: PRODUCT USED FOR UNKNOWN INDICATION
     Dosage: 2500 MILLIGRAM DAILY; 5 EVERY 1 DAY(S)
     Route: 048

REACTIONS (2)
  - Peroneal nerve palsy [Recovering/Resolving]
  - Pain in extremity [Recovering/Resolving]
